FAERS Safety Report 6461833-3 (Version None)
Quarter: 2009Q4

REPORT INFORMATION
  Report Type: 
  Country: None (occurrence: None)
  Receive Date: 20091130
  Receipt Date: 20091123
  Transmission Date: 20100525
  Serious: Yes (Hospitalization)
  Sender: FDA-Public Use
  Company Number: US-MERCK-0805USA00924

PATIENT
  Age: 72 Year
  Sex: Male

DRUGS (4)
  1. FOSAMAX [Suspect]
     Indication: OSTEOPOROSIS PROPHYLAXIS
     Route: 048
     Dates: start: 20020501, end: 20070101
  2. NEURONTIN [Concomitant]
     Indication: NEUROPATHY PERIPHERAL
     Route: 065
  3. NEURONTIN [Concomitant]
     Indication: SPINAL COLUMN STENOSIS
     Route: 065
  4. ACTONEL [Concomitant]
     Route: 065
     Dates: start: 20030401, end: 20031001

REACTIONS (5)
  - DENTAL CARIES [None]
  - ORAL INFECTION [None]
  - OSTEOMYELITIS [None]
  - OSTEONECROSIS [None]
  - TOOTH DISORDER [None]
